FAERS Safety Report 16289919 (Version 1)
Quarter: 2019Q2

REPORT INFORMATION
  Report Type: Spontaneous
  Country: FR (occurrence: FR)
  Receive Date: 20190509
  Receipt Date: 20190509
  Transmission Date: 20190711
  Serious: Yes (Other)
  Sender: FDA-Public Use
  Company Number: PHHY2019FR104904

PATIENT
  Sex: Male

DRUGS (5)
  1. VERSATIS [Concomitant]
     Active Substance: LIDOCAINE
     Indication: ANKYLOSING SPONDYLITIS
     Dosage: UNK
     Route: 048
  2. COSENTYX [Suspect]
     Active Substance: SECUKINUMAB
     Indication: ANKYLOSING SPONDYLITIS
     Dosage: 300 MG, Q4W (2 INJECTIONS OF 150MG)
     Route: 058
     Dates: start: 2016
  3. TRAMADOL. [Concomitant]
     Active Substance: TRAMADOL
     Indication: ANKYLOSING SPONDYLITIS
     Dosage: 150 MG, QD, SLOW RELEASE
     Route: 048
  4. ESOMEPRAZOLE. [Concomitant]
     Active Substance: ESOMEPRAZOLE MAGNESIUM
     Indication: ANKYLOSING SPONDYLITIS
     Dosage: 20 MG, UNK
     Route: 048
  5. DOLIPRANE [Concomitant]
     Active Substance: ACETAMINOPHEN
     Indication: ANKYLOSING SPONDYLITIS
     Dosage: UNK
     Route: 048

REACTIONS (5)
  - Erythema [Recovered/Resolved]
  - Pain in extremity [Not Recovered/Not Resolved]
  - Inflammation [Not Recovered/Not Resolved]
  - Oedema [Not Recovered/Not Resolved]
  - Blister [Not Recovered/Not Resolved]

NARRATIVE: CASE EVENT DATE: 2016
